FAERS Safety Report 6805503-8 (Version None)
Quarter: 2010Q2

REPORT INFORMATION
  Report Type: 
  Country: None (occurrence: None)
  Receive Date: 20100628
  Receipt Date: 20071127
  Transmission Date: 20101027
  Serious: No
  Sender: FDA-Public Use
  Company Number: US-PFIZER INC-2007099791

PATIENT
  Sex: Female
  Weight: 72.727 kg

DRUGS (2)
  1. XALATAN [Suspect]
     Indication: GLAUCOMA
  2. DRUG, UNSPECIFIED [Concomitant]

REACTIONS (3)
  - PARANASAL SINUS HYPERSECRETION [None]
  - SLEEP DISORDER [None]
  - SPUTUM RETENTION [None]
